FAERS Safety Report 6317653-3 (Version None)
Quarter: 2009Q3

REPORT INFORMATION
  Report Type: 
  Country: None (occurrence: None)
  Receive Date: 20090820
  Receipt Date: 20090820
  Transmission Date: 20100115
  Serious: Yes (Hospitalization)
  Sender: FDA-Public Use
  Company Number: None

PATIENT
  Sex: Female
  Weight: 56.4 kg

DRUGS (5)
  1. FOSAMAX [Suspect]
     Indication: OSTEOPOROSIS
     Dosage: FOSAMAX AT LEAST 9/05-8/09
     Dates: start: 20050901, end: 20090801
  2. SYNTHROID [Concomitant]
  3. TRICOR [Concomitant]
  4. QUINAPRIL [Concomitant]
  5. LAMICTAL [Concomitant]

REACTIONS (1)
  - FEMUR FRACTURE [None]
